FAERS Safety Report 16822803 (Version 1)
Quarter: 2019Q3

REPORT INFORMATION
  Report Type: Spontaneous
  Country: US (occurrence: US)
  Receive Date: 20190918
  Receipt Date: 20190918
  Transmission Date: 20191005
  Serious: No
  Sender: FDA-Public Use
  Company Number: None

PATIENT

DRUGS (2)
  1. VAPE (DEVICE) [Suspect]
     Active Substance: DEVICE
     Dates: start: 20170701
  2. KRATOM [Suspect]
     Active Substance: HERBALS\MITRAGYNINE
     Dates: start: 20170701

REACTIONS (1)
  - Drug dependence [None]

NARRATIVE: CASE EVENT DATE: 20180901
